FAERS Safety Report 7037453-9 (Version None)
Quarter: 2010Q4

REPORT INFORMATION
  Report Type: 
  Country: None (occurrence: None)
  Receive Date: 20101011
  Receipt Date: 20101006
  Transmission Date: 20110411
  Serious: Yes (Other)
  Sender: FDA-Public Use
  Company Number: A0770777A

PATIENT
  Age: 62 Year
  Sex: Female

DRUGS (2)
  1. AVANDIA [Suspect]
     Route: 048
     Dates: start: 19991101, end: 20070401
  2. AVANDAMET [Suspect]
     Route: 048
     Dates: start: 20070711

REACTIONS (1)
  - MYOCARDIAL INFARCTION [None]
